FAERS Safety Report 23995093 (Version 1)
Quarter: 2024Q2

REPORT INFORMATION
  Report Type: Spontaneous
  Country: CN (occurrence: CN)
  Receive Date: 20240620
  Receipt Date: 20240620
  Transmission Date: 20240716
  Serious: Yes (Hospitalization)
  Sender: FDA-Public Use
  Company Number: CN-Merck Healthcare KGaA-2024032289

PATIENT
  Age: 73 Year
  Sex: Female

DRUGS (2)
  1. ERBITUX [Suspect]
     Active Substance: CETUXIMAB
     Indication: Rectal neoplasm
     Dosage: 700 MG, UNKNOWN
     Route: 041
     Dates: start: 20240514, end: 20240514
  2. IRINOTECAN [Suspect]
     Active Substance: IRINOTECAN
     Indication: Rectal neoplasm
     Dosage: 0.25 G, DAILY
     Route: 041
     Dates: start: 20240514, end: 20240514

REACTIONS (1)
  - Granulocyte count decreased [Recovered/Resolved]

NARRATIVE: CASE EVENT DATE: 20240523
